FAERS Safety Report 18566811 (Version 1)
Quarter: 2020Q4

REPORT INFORMATION
  Report Type: Report from Study
  Country: US (occurrence: US)
  Receive Date: 20201201
  Receipt Date: 20201201
  Transmission Date: 20210114
  Serious: No
  Sender: FDA-Public Use
  Company Number: US-DOVA PHARMACEUTICALS INC.-DOV-000633

PATIENT
  Sex: Male

DRUGS (2)
  1. DOPTELET [Suspect]
     Active Substance: AVATROMBOPAG MALEATE
     Indication: IMMUNE THROMBOCYTOPENIA
     Dosage: 20 MG,EVERY WEEK
     Route: 048
     Dates: start: 202008
  2. DOPTELET [Suspect]
     Active Substance: AVATROMBOPAG MALEATE
     Dosage: 40 MILLIGRAM, ONCE A WEEK
     Route: 048

REACTIONS (5)
  - Platelet count decreased [Unknown]
  - Unevaluable event [Unknown]
  - Pain in extremity [Recovered/Resolved]
  - Restless legs syndrome [Recovered/Resolved]
  - Product dose omission issue [Unknown]
